FAERS Safety Report 11457900 (Version 2)
Quarter: 2015Q4

REPORT INFORMATION
  Report Type: Spontaneous
  Country: JP (occurrence: JP)
  Receive Date: 20150904
  Receipt Date: 20151014
  Transmission Date: 20160304
  Serious: Yes (Hospitalization, Other)
  Sender: FDA-Public Use
  Company Number: PHHY2015JP105838

PATIENT
  Age: 34 Year
  Sex: Female

DRUGS (5)
  1. LOXOPROFEN [Suspect]
     Active Substance: LOXOPROFEN
     Indication: BACK PAIN
     Dosage: 60 MG, FOR 3 DAYS
     Route: 065
  2. PREDNISOLONE. [Suspect]
     Active Substance: PREDNISOLONE
     Dosage: 50 MG, QD
     Route: 065
  3. PREDNISOLONE. [Suspect]
     Active Substance: PREDNISOLONE
     Indication: GRANULOMATOSIS WITH POLYANGIITIS
     Dosage: 30 MG, QD
     Route: 065
  4. PREDNISOLONE. [Suspect]
     Active Substance: PREDNISOLONE
     Dosage: 40 MG/DAY
  5. MIZORIBINE [Concomitant]
     Active Substance: MIZORIBINE
     Indication: PRODUCT USED FOR UNKNOWN INDICATION
     Dosage: 150 MG/DAY
     Route: 065

REACTIONS (4)
  - Inflammation [Unknown]
  - Intestinal perforation [Unknown]
  - Eosinophilia [Unknown]
  - Pyrexia [Unknown]
